APPROVED DRUG PRODUCT: NITROGLYCERIN
Active Ingredient: NITROGLYCERIN
Strength: 0.4MG
Dosage Form/Route: TABLET;SUBLINGUAL
Application: A217879 | Product #002 | TE Code: AB
Applicant: AUROBINDO PHARMA LTD
Approved: Oct 26, 2023 | RLD: No | RS: No | Type: RX